APPROVED DRUG PRODUCT: LACOSAMIDE
Active Ingredient: LACOSAMIDE
Strength: 200MG
Dosage Form/Route: TABLET;ORAL
Application: A204994 | Product #004 | TE Code: AB
Applicant: AUROBINDO PHARMA LTD
Approved: Jan 5, 2023 | RLD: No | RS: No | Type: RX